FAERS Safety Report 25794335 (Version 1)
Quarter: 2025Q3

REPORT INFORMATION
  Report Type: Spontaneous
  Country: JP (occurrence: JP)
  Receive Date: 20250912
  Receipt Date: 20250912
  Transmission Date: 20251021
  Serious: Yes (Hospitalization)
  Sender: MERCK SHARP & DOHME LLC
  Company Number: JP-MSD-M2023-54320

PATIENT
  Age: 32 Year
  Sex: Female

DRUGS (5)
  1. KEYTRUDA [Suspect]
     Active Substance: PEMBROLIZUMAB
     Indication: Triple negative breast cancer
     Dosage: DOSE DESCRIPTION : 200 MILLIGRAM, Q3W?DAILY DOSE : 9.4 MILLIGRAM?REGIMEN DOSE : 800  MILLIGRAM
     Route: 041
     Dates: start: 20230913, end: 20231206
  2. PACLITAXEL [Suspect]
     Active Substance: PACLITAXEL
     Indication: Triple negative breast cancer
     Dates: start: 20230913, end: 20231122
  3. CARBOPLATIN [Suspect]
     Active Substance: CARBOPLATIN
     Indication: Triple negative breast cancer
     Dates: start: 20230913, end: 20231122
  4. DOXORUBICIN HYDROCHLORIDE [Concomitant]
     Active Substance: DOXORUBICIN HYDROCHLORIDE
     Indication: Triple negative breast cancer
     Dosage: DOSE DESCRIPTION : 60 MILLIGRAM/SQ. METER, Q3W?DAILY DOSE : 2.82 MILLIGRAM/SQ. METER?REGIMEN DOSE...
     Route: 042
     Dates: start: 20231206
  5. CYCLOPHOSPHAMIDE [Concomitant]
     Active Substance: CYCLOPHOSPHAMIDE
     Indication: Triple negative breast cancer
     Dosage: DOSE DESCRIPTION : 600 MILLIGRAM/SQ. METER, Q3W?DAILY DOSE : 28.2 MILLIGRAM/SQ. METER?REGIMEN DOS...
     Route: 042
     Dates: start: 20231206

REACTIONS (2)
  - Cytopenia [Recovered/Resolved]
  - Surgery [Unknown]

NARRATIVE: CASE EVENT DATE: 20231201
